FAERS Safety Report 22646613 (Version 10)
Quarter: 2023Q4

REPORT INFORMATION
  Report Type: Spontaneous
  Country: US (occurrence: US)
  Receive Date: 20230627
  Receipt Date: 20231027
  Transmission Date: 20240110
  Serious: Yes (Other)
  Sender: FDA-Public Use
  Company Number: US-PFIZER INC-PV202300110804

PATIENT
  Age: 66 Year
  Sex: Female

DRUGS (3)
  1. IBRANCE [Suspect]
     Active Substance: PALBOCICLIB
     Dosage: 125 MG
  2. IBRANCE [Suspect]
     Active Substance: PALBOCICLIB
     Dosage: UNK, CYCLIC (STARTING THEIR IBRANCE CYCLE A DAY EARLY ON ACCIDENT)
  3. IBRANCE [Suspect]
     Active Substance: PALBOCICLIB
     Dosage: 100 MG, CYCLIC

REACTIONS (14)
  - Rectal haemorrhage [Recovered/Resolved]
  - Anal haemorrhage [Unknown]
  - Pain in extremity [Not Recovered/Not Resolved]
  - Hip arthroplasty [Unknown]
  - Product dose omission in error [Unknown]
  - Inappropriate schedule of product administration [Unknown]
  - Fatigue [Unknown]
  - White blood cell count decreased [Unknown]
  - Full blood count decreased [Unknown]
  - Dry skin [Not Recovered/Not Resolved]
  - Hot flush [Unknown]
  - Memory impairment [Unknown]
  - Alopecia [Unknown]
  - Incontinence [Unknown]
